FAERS Safety Report 11055976 (Version 1)
Quarter: 2015Q2

REPORT INFORMATION
  Report Type: Spontaneous
  Country: IT (occurrence: IT)
  Receive Date: 20150422
  Receipt Date: 20150422
  Transmission Date: 20150821
  Serious: Yes (Other)
  Sender: FDA-Public Use
  Company Number: IT-TEVA-556418ACC

PATIENT
  Age: 58 Year
  Sex: Female

DRUGS (5)
  1. FLUOROURACILE TEVA - 500 MG/10 ML SOLUZIONE PER INFUSIONE [Suspect]
     Active Substance: FLUOROURACIL
     Indication: PRODUCT USED FOR UNKNOWN INDICATION
     Dosage: 2400 MG TOTAL
     Route: 042
     Dates: start: 20150402, end: 20150403
  2. LEVOFOLENE - 175 MG POLVERE PER SOLUZIONE PER INFUSIONE [Concomitant]
     Indication: PRODUCT USED FOR UNKNOWN INDICATION
     Dosage: POWDER FOR SOLUTION FOR INFUSION
  3. ZOFRAN - 4 MG/2 ML SOLUZIONE INIETTABILE [Concomitant]
     Indication: PRODUCT USED FOR UNKNOWN INDICATION
  4. SOLDESAM - 4 MG/ML SOLUZIONE INIETTABILE [Concomitant]
     Active Substance: DEXAMETHASONE
     Indication: PRODUCT USED FOR UNKNOWN INDICATION
  5. OXALIPLATINO KABI - 5 MG/ML CONCENTRATO PER SOLUZIONE PER INFUSIONE [Suspect]
     Active Substance: OXALIPLATIN
     Indication: PRODUCT USED FOR UNKNOWN INDICATION
     Dosage: 125 MG TOTAL,CONCENTRATE FOR SOLUTION FOR INFUSION
     Route: 041
     Dates: start: 20150402, end: 20150403

REACTIONS (2)
  - Palpitations [Recovered/Resolved]
  - Supraventricular tachycardia [Recovered/Resolved]

NARRATIVE: CASE EVENT DATE: 20150402
